FAERS Safety Report 5210474-4 (Version None)
Quarter: 2006Q4

REPORT INFORMATION
  Report Type: 
  Country: None (occurrence: None)
  Receive Date: 20061106
  Receipt Date: 20060306
  Transmission Date: 20070319
  Serious: Yes (Other)
  Sender: FDA-Public Use
  Company Number: US-JNJFOC-20060303446

PATIENT
  Sex: Male
  Weight: 97.5234 kg

DRUGS (8)
  1. MOTRIN [Suspect]
     Indication: DRUG USE FOR UNKNOWN INDICATION
     Dosage: DOSAGE UNKNOWN-ONLY TOOK A ^COUPLE OF TIMES^
  2. NEURONTIN [Suspect]
     Indication: CONVULSION
     Dosage: 600 MG, 4 IN 1 DAY
     Dates: start: 19810101
  3. TEGRETOL [Suspect]
     Indication: DRUG USE FOR UNKNOWN INDICATION
  4. CLONAZEPAM [Suspect]
     Indication: DRUG USE FOR UNKNOWN INDICATION
  5. VICOPROFEN [Suspect]
     Indication: DRUG USE FOR UNKNOWN INDICATION
  6. PREVACID [Suspect]
     Indication: DRUG USE FOR UNKNOWN INDICATION
  7. RITALIN [Concomitant]
  8. TRILEPTAL [Concomitant]

REACTIONS (6)
  - ABDOMINAL PAIN UPPER [None]
  - CONSTIPATION [None]
  - FLATULENCE [None]
  - GASTROINTESTINAL DISORDER [None]
  - GASTROINTESTINAL HAEMORRHAGE [None]
  - WEIGHT DECREASED [None]
